FAERS Safety Report 6077477-1 (Version None)
Quarter: 2009Q1

REPORT INFORMATION
  Report Type: 
  Country: None (occurrence: None)
  Receive Date: 20090213
  Receipt Date: 20081208
  Transmission Date: 20090719
  Serious: No
  Sender: FDA-Public Use
  Company Number: A0759479A

PATIENT
  Age: 33 Year
  Sex: Male

DRUGS (4)
  1. TREXIMET [Suspect]
     Indication: MIGRAINE
     Route: 048
     Dates: start: 20080501
  2. DEPAKOTE [Concomitant]
  3. ZYBAN [Concomitant]
  4. ZOFRAN [Concomitant]

REACTIONS (1)
  - DRUG SCREEN FALSE POSITIVE [None]
